FAERS Safety Report 18269459 (Version 1)
Quarter: 2020Q3

REPORT INFORMATION
  Report Type: Spontaneous
  Country: GB (occurrence: GB)
  Receive Date: 20200915
  Receipt Date: 20200915
  Transmission Date: 20201103
  Serious: Yes (Other)
  Sender: FDA-Public Use
  Company Number: GB-FRESENIUS KABI-FK202009418

PATIENT
  Age: 2 Year
  Sex: Female

DRUGS (2)
  1. IODINE (125 I) [Concomitant]
     Indication: BRACHYTHERAPY
     Dosage: UNKNOWN
     Route: 065
  2. MELPHALAN (MANUFACTURER UNKNOWN) [Suspect]
     Active Substance: MELPHALAN
     Indication: RETINOBLASTOMA
     Dosage: RECEIVED THREE WEEKLY INJECTIONS
     Route: 050

REACTIONS (1)
  - Cystoid macular oedema [Recovered/Resolved]
